FAERS Safety Report 5481376-3 (Version None)
Quarter: 2007Q4

REPORT INFORMATION
  Report Type: 
  Country: None (occurrence: None)
  Receive Date: 20071010
  Receipt Date: 20070921
  Transmission Date: 20080405
  Serious: Yes (Hospitalization)
  Sender: FDA-Public Use
  Company Number: FR-BRISTOL-MYERS SQUIBB COMPANY-13897962

PATIENT
  Age: 46 Year
  Sex: Female

DRUGS (3)
  1. CETUXIMAB [Suspect]
     Indication: SQUAMOUS CELL CARCINOMA OF THE CERVIX
     Dosage: CETUXIMAB 5 MG/ML IS GIVEN. DRUG WITHDRAWN ON 05JUN07 AND RESTARTED ON 26JUN07.
     Route: 042
     Dates: start: 20070424, end: 20070605
  2. CISPLATIN [Suspect]
     Indication: SQUAMOUS CELL CARCINOMA OF THE CERVIX
     Dosage: 50 MG/M2 FROM 24APR07 TO 05JUN07. DOSE REDUCED 40MG/M2 FROM 26JUN07.
     Route: 042
     Dates: start: 20070424, end: 20070605
  3. TOPOTECAN [Suspect]
     Indication: SQUAMOUS CELL CARCINOMA OF THE CERVIX
     Dosage: 0.75MG/M2 WAS ADMINISTERED TILL 07JUN07. DOSE REDUCED TO 0.6MG/M2 FROM 26JUN07.
     Route: 042
     Dates: start: 20070424, end: 20070607

REACTIONS (5)
  - ANAEMIA [None]
  - NEUTROPENIA [None]
  - NEUTROPENIC INFECTION [None]
  - SEPTIC SHOCK [None]
  - THROMBOCYTOPENIA [None]
